FAERS Safety Report 24202757 (Version 1)
Quarter: 2024Q3

REPORT INFORMATION
  Report Type: Spontaneous
  Country: US (occurrence: US)
  Receive Date: 20240813
  Receipt Date: 20240813
  Transmission Date: 20241017
  Serious: No
  Sender: GLENMARK
  Company Number: US-GLENMARK PHARMACEUTICALS-2024GMK091012

PATIENT

DRUGS (4)
  1. ADAPALENE [Suspect]
     Active Substance: ADAPALENE
     Indication: Skin discolouration
     Dosage: UNK, QD (ONCE DAILY IN THE EVENING) (DURATION: TWICE)
     Route: 065
  2. ADAPALENE [Suspect]
     Active Substance: ADAPALENE
     Indication: Acne
     Dosage: UNK, SHE USED IT AGAIN AFTER THREE DAYS
     Route: 065
  3. FOLIC ACID [Concomitant]
     Active Substance: FOLIC ACID
     Indication: Product used for unknown indication
     Dosage: UNK
     Route: 065
  4. IRON [Concomitant]
     Active Substance: IRON
     Indication: Product used for unknown indication
     Dosage: UNK, IRON SUPPLEMENT
     Route: 065

REACTIONS (4)
  - Application site papules [Recovered/Resolved]
  - Application site dryness [Recovered/Resolved]
  - Application site pain [Recovered/Resolved]
  - Product use in unapproved indication [Unknown]
